FAERS Safety Report 4840178-9 (Version None)
Quarter: 2005Q4

REPORT INFORMATION
  Report Type: 
  Country: None (occurrence: None)
  Receive Date: 20051125
  Receipt Date: 20051114
  Transmission Date: 20060501
  Serious: Yes (Other)
  Sender: FDA-Public Use
  Company Number: MC200500887

PATIENT
  Age: 78 Year
  Sex: Male
  Weight: 72.6 kg

DRUGS (4)
  1. ANGIOMAX [Suspect]
     Indication: ANGIOGRAM
     Dosage: 12 ML, BOLUS, IV BOLUS; 28 ML HR, INTRAVENOUS
     Route: 040
     Dates: start: 20051003, end: 20051003
  2. ANGIOMAX [Suspect]
     Indication: ANGIOGRAM
     Dosage: 12 ML, BOLUS, IV BOLUS; 28 ML HR, INTRAVENOUS
     Route: 040
     Dates: start: 20051003, end: 20051003
  3. ASA (ACETYLALICYLIC ACID) [Concomitant]
  4. PLAVIX [Concomitant]

REACTIONS (3)
  - ARTERY DISSECTION [None]
  - CORONARY ARTERY OCCLUSION [None]
  - PROCEDURAL COMPLICATION [None]
